FAERS Safety Report 9190879 (Version 1)
Quarter: 2013Q1

REPORT INFORMATION
  Report Type: Report from Study
  Country: JP (occurrence: JP)
  Receive Date: 20130326
  Receipt Date: 20130326
  Transmission Date: 20140127
  Serious: Yes (Other)
  Sender: FDA-Public Use
  Company Number: JP-GLAXOSMITHKLINE-B0705912A

PATIENT
  Age: 52 Year
  Sex: Male
  Weight: 77 kg

DRUGS (14)
  1. REVOLADE [Suspect]
     Indication: IDIOPATHIC THROMBOCYTOPENIC PURPURA
     Dosage: 12.5MG PER DAY
     Route: 048
     Dates: start: 20110203, end: 20110302
  2. REVOLADE [Suspect]
     Indication: IDIOPATHIC THROMBOCYTOPENIC PURPURA
     Dosage: 25MG PER DAY
     Route: 048
     Dates: start: 20110303, end: 20110316
  3. REVOLADE [Suspect]
     Indication: IDIOPATHIC THROMBOCYTOPENIC PURPURA
     Dosage: 37.5MG PER DAY
     Route: 048
     Dates: start: 20110317, end: 20110525
  4. REVOLADE [Suspect]
     Indication: IDIOPATHIC THROMBOCYTOPENIC PURPURA
     Dosage: 50MG PER DAY
     Route: 048
     Dates: start: 20110526
  5. WARFARIN [Concomitant]
     Indication: PROPHYLAXIS
     Route: 048
  6. IRBETAN [Concomitant]
     Route: 048
  7. CALBLOCK [Concomitant]
     Route: 048
  8. BONALON [Concomitant]
     Indication: PROPHYLAXIS
     Route: 048
     Dates: end: 20111222
  9. GASTER D [Concomitant]
     Indication: PROPHYLAXIS AGAINST GASTROINTESTINAL ULCER
     Route: 048
     Dates: start: 20111020
  10. PREDONINE [Concomitant]
     Indication: IDIOPATHIC THROMBOCYTOPENIC PURPURA
     Route: 048
  11. ZYLORIC [Concomitant]
     Route: 048
     Dates: start: 20110428
  12. NEWTOLIDE [Concomitant]
     Route: 048
     Dates: start: 20110623
  13. TAKEPRON [Concomitant]
     Indication: PROPHYLAXIS AGAINST GASTROINTESTINAL ULCER
     Route: 048
     Dates: start: 20110818, end: 20111019
  14. BONOTEO [Concomitant]
     Indication: OSTEOPOROSIS PROPHYLAXIS
     Route: 048
     Dates: start: 20120112

REACTIONS (2)
  - Angina unstable [Recovering/Resolving]
  - Cold sweat [Recovered/Resolved]
